FAERS Safety Report 10009901 (Version 2)
Quarter: 2014Q1

REPORT INFORMATION
  Report Type: Spontaneous
  Country: US (occurrence: US)
  Receive Date: 20140312
  Receipt Date: 20140312
  Transmission Date: 20141002
  Serious: Yes (Other)
  Sender: FDA-Public Use
  Company Number: US-INCYTE CORPORATION-2013IN000336

PATIENT
  Sex: Female

DRUGS (11)
  1. JAKAFI [Suspect]
     Indication: MYELOFIBROSIS
     Dosage: 10 MG, BID
     Route: 048
     Dates: start: 2012
  2. JAKAFI [Suspect]
     Indication: MYELOPROLIFERATIVE DISORDER
     Dosage: 5 MG, QD
     Route: 048
  3. CRESTOR [Concomitant]
  4. METOPROLOL [Concomitant]
  5. ASPIRIN [Concomitant]
  6. LOSARTAN [Concomitant]
  7. NORVASC [Concomitant]
  8. GLIPIZIDE [Concomitant]
  9. AMBIEN CR [Concomitant]
  10. ZOLOFT [Concomitant]
  11. GABAPENTIN [Concomitant]

REACTIONS (1)
  - Platelet count decreased [Recovering/Resolving]
